FAERS Safety Report 10048503 (Version 1)
Quarter: 2014Q1

REPORT INFORMATION
  Report Type: Spontaneous
  Country: US (occurrence: US)
  Receive Date: 20140331
  Receipt Date: 20140331
  Transmission Date: 20141002
  Serious: Yes (Hospitalization)
  Sender: FDA-Public Use
  Company Number: US-BRISTOL-MYERS SQUIBB COMPANY-20582839

PATIENT
  Age: 65 Year
  Sex: Male
  Weight: 102.04 kg

DRUGS (5)
  1. WARFARIN SODIUM [Suspect]
     Dates: start: 2006
  2. AMIODARONE HCL [Concomitant]
  3. LISINOPRIL [Concomitant]
  4. COREG [Concomitant]
     Dosage: 1 DF= 6.25 UNITS NOS.
  5. REQUIP [Concomitant]
     Indication: MUSCLE TWITCHING

REACTIONS (7)
  - Arrhythmia [Unknown]
  - Diarrhoea [Unknown]
  - Nausea [Recovered/Resolved]
  - Chromaturia [Unknown]
  - Vomiting [Recovered/Resolved]
  - Drug dose omission [Unknown]
  - International normalised ratio decreased [Unknown]
